FAERS Safety Report 9151689 (Version 1)
Quarter: 2013Q1

REPORT INFORMATION
  Report Type: Spontaneous
  Country: DE (occurrence: DE)
  Receive Date: 20130308
  Receipt Date: 20130308
  Transmission Date: 20140127
  Serious: Yes (Hospitalization)
  Sender: FDA-Public Use
  Company Number: DE-BAYER-2013-029040

PATIENT
  Age: 34 Year
  Sex: Female

DRUGS (11)
  1. CIPROFLOXACIN [Suspect]
     Indication: BRONCHOPNEUMONIA
     Dosage: 500 MG, BID
     Route: 048
     Dates: start: 201003, end: 2010
  2. CIPROFLOXACIN [Suspect]
     Indication: HAEMOPHILUS INFECTION
     Dosage: 500 MG, BID
     Route: 048
     Dates: start: 201105, end: 2011
  3. CLARITHROMYCIN [Suspect]
     Indication: BRONCHOPNEUMONIA
     Dosage: 250 MG, BID
     Route: 048
     Dates: start: 200707
  4. CLARITHROMYCIN [Suspect]
     Indication: HAEMOPHILUS INFECTION
     Dosage: 250 MG, BID
     Route: 048
     Dates: start: 201009
  5. MOXIFLOXACIN ORAL [Suspect]
     Indication: BRONCHOPNEUMONIA
     Dosage: 400 MG, DAILY
     Dates: start: 200806, end: 200806
  6. MOXIFLOXACIN ORAL [Suspect]
     Indication: HAEMOPHILUS INFECTION
  7. PIPERACILLIN W/TAZOBACTAM [Suspect]
     Indication: BRONCHOPNEUMONIA
     Dosage: 4.5 G, TID
     Route: 042
     Dates: start: 201009
  8. PIPERACILLIN W/TAZOBACTAM [Suspect]
     Indication: HAEMOPHILUS INFECTION
     Dosage: 4.5 G, TID
     Route: 042
     Dates: start: 201102
  9. GENTAMICIN [Suspect]
     Indication: BRONCHOPNEUMONIA
     Dosage: 240 MG, QD
     Route: 042
     Dates: start: 201009, end: 2010
  10. GENTAMICIN [Suspect]
     Indication: HAEMOPHILUS INFECTION
     Dosage: 240 MG, QD
     Route: 042
     Dates: start: 201102, end: 2011
  11. IMMUNOGLOBULIN [Concomitant]
     Dosage: UNK
     Route: 042

REACTIONS (2)
  - Bronchopneumonia [None]
  - Pathogen resistance [Not Recovered/Not Resolved]
